FAERS Safety Report 13882720 (Version 3)
Quarter: 2017Q3

REPORT INFORMATION
  Report Type: Spontaneous
  Country: US (occurrence: US)
  Receive Date: 20170818
  Receipt Date: 20170922
  Transmission Date: 20171127
  Serious: No
  Sender: FDA-Public Use
  Company Number: US-GLAXOSMITHKLINE-US2017GSK128281

PATIENT
  Age: 87 Year
  Sex: Female

DRUGS (17)
  1. OXYBUTYNIN [Concomitant]
     Active Substance: OXYBUTYNIN
  2. TUMS [Concomitant]
     Active Substance: CALCIUM CARBONATE
  3. ELIQUIS [Concomitant]
     Active Substance: APIXABAN
  4. GLUCOSAMINE [Concomitant]
     Active Substance: GLUCOSAMINE
  5. ANORO ELLIPTA [Suspect]
     Active Substance: UMECLIDINIUM BROMIDE\VILANTEROL TRIFENATATE
     Indication: CHRONIC OBSTRUCTIVE PULMONARY DISEASE
     Dosage: 1 PUFF(S), 1D
     Dates: start: 20170811, end: 20170815
  6. OMEGA 3 [Concomitant]
     Active Substance: OMEGA-3 FATTY ACIDS
  7. GLUCOSAMINE CHONDROITIN [Concomitant]
     Active Substance: CHONDROITIN SULFATE (BOVINE)\GLUCOSAMINE HYDROCHLORIDE
  8. VITAMIN E [Concomitant]
     Active Substance: .ALPHA.-TOCOPHEROL
  9. VITAMIN B12 [Concomitant]
     Active Substance: CYANOCOBALAMIN
  10. PREMARIN [Concomitant]
     Active Substance: ESTROGENS, CONJUGATED
  11. SINGULAIR [Concomitant]
     Active Substance: MONTELUKAST SODIUM
  12. STRONTIUM [Concomitant]
     Active Substance: STRONTIUM
  13. HYDROCHLOROTHIAZIDE. [Concomitant]
     Active Substance: HYDROCHLOROTHIAZIDE
  14. LEVOTHYROXINE. [Concomitant]
     Active Substance: LEVOTHYROXINE
  15. ALLEGRA [Concomitant]
     Active Substance: FEXOFENADINE HYDROCHLORIDE
  16. PROVENTIL [Concomitant]
     Active Substance: ALBUTEROL
  17. COENZYME Q10 [Concomitant]
     Active Substance: UBIDECARENONE

REACTIONS (1)
  - Diarrhoea [Recovered/Resolved]

NARRATIVE: CASE EVENT DATE: 20170815
